FAERS Safety Report 7209612-3 (Version None)
Quarter: 2011Q1

REPORT INFORMATION
  Report Type: 
  Country: None (occurrence: None)
  Receive Date: 20110104
  Receipt Date: 20101013
  Transmission Date: 20110831
  Serious: Yes (Hospitalization, Other)
  Sender: FDA-Public Use
  Company Number: DE-CEPHALON-2010004402

PATIENT
  Age: 61 Year
  Sex: Male
  Weight: 77 kg

DRUGS (2)
  1. RITUXIMAB [Suspect]
     Route: 042
     Dates: start: 20100804, end: 20100804
  2. TREANDA [Suspect]
     Route: 042
     Dates: start: 20100622, end: 20100805

REACTIONS (1)
  - RESPIRATORY TRACT INFECTION [None]
